FAERS Safety Report 9199992 (Version 2)
Quarter: 2013Q4

REPORT INFORMATION
  Report Type: Spontaneous
  Country: US (occurrence: US)
  Receive Date: 20130329
  Receipt Date: 20131121
  Transmission Date: 20140711
  Serious: Yes (Other)
  Sender: FDA-Public Use
  Company Number: US-GLAXOSMITHKLINE-A1017031A

PATIENT
  Age: 80 Year
  Sex: Male

DRUGS (14)
  1. ADVAIR [Suspect]
     Indication: CHRONIC OBSTRUCTIVE PULMONARY DISEASE
     Dosage: 1PUFF TWICE PER DAY
     Route: 055
     Dates: start: 20111003
  2. FUROSEMIDE [Concomitant]
  3. POTASSIUM CHLORIDE [Concomitant]
  4. LOVAZA [Concomitant]
  5. DIAMOX [Concomitant]
  6. AMLODIPINE [Concomitant]
  7. VENLAFAXINE [Concomitant]
  8. METOPROLOL [Concomitant]
  9. NIASPAN [Concomitant]
  10. PRAVASTATIN [Concomitant]
  11. B COMPLEX [Concomitant]
  12. SPIRIVA [Concomitant]
  13. HYDRALAZINE [Concomitant]
  14. VENTOLIN [Concomitant]

REACTIONS (4)
  - Pharyngeal haemorrhage [Not Recovered/Not Resolved]
  - Haemorrhage [Not Recovered/Not Resolved]
  - Ill-defined disorder [Not Recovered/Not Resolved]
  - Mouth haemorrhage [Not Recovered/Not Resolved]
